FAERS Safety Report 4574021-2 (Version None)
Quarter: 2005Q1

REPORT INFORMATION
  Report Type: 
  Country: None (occurrence: None)
  Receive Date: 20050204
  Receipt Date: 20050124
  Transmission Date: 20050727
  Serious: Yes (Hospitalization, Disabling, Other)
  Sender: FDA-Public Use
  Company Number: 2004099657

PATIENT
  Age: 90 Year
  Sex: Female
  Weight: 52.1637 kg

DRUGS (6)
  1. NEURONTIN [Suspect]
     Indication: ARTHRITIS
     Dosage: 300 MG, ORAL
     Route: 048
     Dates: start: 20020215, end: 20020101
  2. CELEBREX [Suspect]
     Indication: ILL-DEFINED DISORDER
     Dosage: ORAL
     Route: 048
  3. QUININE (QUININE) [Concomitant]
  4. CENTRUM SILVER (ASCORBIC ACID, CALCIUM, MINERALS NOS, RETINOL, TOCOPHE [Concomitant]
  5. CALCIUM (CALCIUM) [Concomitant]
  6. ASCORBIC ACID [Concomitant]

REACTIONS (12)
  - ABASIA [None]
  - BLINDNESS [None]
  - CONTUSION [None]
  - DELUSION [None]
  - DIZZINESS [None]
  - DYSSTASIA [None]
  - FALL [None]
  - FEELING ABNORMAL [None]
  - ILLUSION [None]
  - JOINT INJURY [None]
  - THINKING ABNORMAL [None]
  - VERTIGO [None]
